FAERS Safety Report 13368573 (Version 15)
Quarter: 2017Q3

REPORT INFORMATION
  Report Type: Spontaneous
  Country: US (occurrence: US)
  Receive Date: 20170324
  Receipt Date: 20170925
  Transmission Date: 20171127
  Serious: Yes (Other)
  Sender: FDA-Public Use
  Company Number: US-PFIZER INC-2017125700

PATIENT
  Age: 71 Year
  Sex: Male
  Weight: 53.7 kg

DRUGS (9)
  1. SUTENT [Suspect]
     Active Substance: SUNITINIB MALATE
     Dosage: 37.5 MG, CYCLIC (14 DAYS ON AND 14 DAYS OFF)
     Route: 048
     Dates: start: 201705
  2. PEPCID AC [Concomitant]
     Active Substance: FAMOTIDINE
     Indication: GASTROOESOPHAGEAL REFLUX DISEASE
     Dosage: UNK, 2X/DAY
  3. SUTENT [Suspect]
     Active Substance: SUNITINIB MALATE
     Dosage: 37.5 MG, CYCLIC (2 WEEKS ON/2 WEEKS OFF)
     Route: 048
  4. SUTENT [Suspect]
     Active Substance: SUNITINIB MALATE
     Dosage: 37.5 MG, CYCLIC (2 WEEKS ON/2 WEEKS OFF)
     Route: 048
     Dates: start: 20170506, end: 20170519
  5. ZANTAC [Concomitant]
     Active Substance: RANITIDINE HYDROCHLORIDE
     Dosage: UNK, 1X/DAY
  6. SUTENT [Suspect]
     Active Substance: SUNITINIB MALATE
     Dosage: 37.5 MG, CYCLIC (2 WEEKS ON/2 WEEKS OFF)
     Route: 048
  7. XGEVA [Concomitant]
     Active Substance: DENOSUMAB
     Dosage: UNK
  8. ZANTAC [Concomitant]
     Active Substance: RANITIDINE HYDROCHLORIDE
     Dosage: UNK, 2X/DAY
  9. SUTENT [Suspect]
     Active Substance: SUNITINIB MALATE
     Indication: PANCREATIC NEUROENDOCRINE TUMOUR METASTATIC
     Dosage: 37.5 MG, DAILY
     Route: 048
     Dates: start: 20170317, end: 20170413

REACTIONS (38)
  - Dysgeusia [Not Recovered/Not Resolved]
  - Eye swelling [Recovering/Resolving]
  - Diarrhoea [Unknown]
  - Red blood cell count decreased [Recovered/Resolved]
  - Joint swelling [Not Recovered/Not Resolved]
  - Foreign body sensation in eyes [Unknown]
  - Nightmare [Unknown]
  - Dyspepsia [Unknown]
  - Peripheral swelling [Not Recovered/Not Resolved]
  - Hypertension [Not Recovered/Not Resolved]
  - Abdominal discomfort [Unknown]
  - Face oedema [Not Recovered/Not Resolved]
  - Swelling face [Recovering/Resolving]
  - Fatigue [Not Recovered/Not Resolved]
  - Dizziness [Unknown]
  - Nasopharyngitis [Not Recovered/Not Resolved]
  - Heart rate increased [Unknown]
  - Nausea [Recovering/Resolving]
  - Oral pain [Not Recovered/Not Resolved]
  - Dysphonia [Unknown]
  - Sinus disorder [Unknown]
  - Oral disorder [Unknown]
  - White blood cell count decreased [Recovered/Resolved]
  - Ageusia [Not Recovered/Not Resolved]
  - Asthenia [Unknown]
  - Feeling cold [Not Recovered/Not Resolved]
  - Nasal congestion [Unknown]
  - Abdominal pain upper [Not Recovered/Not Resolved]
  - Platelet count decreased [Recovering/Resolving]
  - Tongue disorder [Unknown]
  - Depressed mood [Not Recovered/Not Resolved]
  - Pyrexia [Unknown]
  - Musculoskeletal pain [Unknown]
  - Back pain [Unknown]
  - Constipation [Unknown]
  - Glossodynia [Unknown]
  - Visual impairment [Unknown]
  - Sinusitis [Not Recovered/Not Resolved]

NARRATIVE: CASE EVENT DATE: 2017
